FAERS Safety Report 5199889-0 (Version None)
Quarter: 2007Q1

REPORT INFORMATION
  Report Type: 
  Country: None (occurrence: None)
  Receive Date: 20070105
  Receipt Date: 20070105
  Transmission Date: 20070707
  Serious: Yes (Other)
  Sender: FDA-Public Use
  Company Number: US-GLAXOSMITHKLINE-A0634103A

PATIENT
  Sex: Female

DRUGS (1)
  1. DEBROX DROPS [Suspect]
     Indication: DRUG USE FOR UNKNOWN INDICATION
     Dosage: 9DROP UNKNOWN
     Route: 001

REACTIONS (1)
  - EAR HAEMORRHAGE [None]
